FAERS Safety Report 25778296 (Version 1)
Quarter: 2025Q3

REPORT INFORMATION
  Report Type: Spontaneous
  Country: GB (occurrence: GB)
  Receive Date: 20250909
  Receipt Date: 20250909
  Transmission Date: 20251020
  Serious: Yes (Hospitalization)
  Sender: MICRO LABS
  Company Number: GB-MLMSERVICE-20250821-PI621841-00052-1

PATIENT
  Age: 25 Year
  Sex: Female

DRUGS (1)
  1. AMOXICILLIN [Suspect]
     Active Substance: AMOXICILLIN
     Indication: Lower respiratory tract infection
     Dosage: SEVEN-DAY COURSE OF AMOXICILLIN (500 MG) TO BE TAKEN THREE TIMES DAILY
     Route: 048
     Dates: start: 2025, end: 2025

REACTIONS (3)
  - Meningitis aseptic [Recovered/Resolved]
  - Tinnitus [Recovered/Resolved]
  - Chest pain [Recovered/Resolved]

NARRATIVE: CASE EVENT DATE: 20250101
